FAERS Safety Report 17623316 (Version 3)
Quarter: 2020Q2

REPORT INFORMATION
  Report Type: Report from Study
  Country: IT (occurrence: IT)
  Receive Date: 20200403
  Receipt Date: 20200504
  Transmission Date: 20200713
  Serious: Yes (Hospitalization, Disabling, Other)
  Sender: FDA-Public Use
  Company Number: IT-INCYTE CORPORATION-2020IN003116

PATIENT

DRUGS (4)
  1. JAKAVI [Suspect]
     Active Substance: RUXOLITINIB
     Indication: MYELOFIBROSIS
     Dosage: 15 MG, BID
     Route: 048
     Dates: start: 20171113
  2. SINEMET [Concomitant]
     Active Substance: CARBIDOPA\LEVODOPA
     Indication: PARKINSONISM
     Dosage: UNK, (100 MG AND 25 MG X 5)
     Route: 065
     Dates: start: 2001
  3. BISOPROLOL [Concomitant]
     Active Substance: BISOPROLOL
     Indication: ATRIAL FIBRILLATION
     Dosage: 2.5 MG, QD
     Route: 065
     Dates: start: 201603
  4. ASA [Concomitant]
     Active Substance: ASPIRIN
     Indication: ACUTE MYOCARDIAL INFARCTION
     Dosage: 100 MG, QD
     Route: 065
     Dates: start: 201609

REACTIONS (18)
  - Atrial fibrillation [Unknown]
  - Nervous system disorder [Unknown]
  - Faecaloma [Unknown]
  - Osteoma [Unknown]
  - Hemiparesis [Unknown]
  - Myocardial infarction [Unknown]
  - Frequent bowel movements [Unknown]
  - Hypotension [Unknown]
  - Foreign body [Unknown]
  - Abdominal pain [Unknown]
  - Transient ischaemic attack [Unknown]
  - Anaemia [Unknown]
  - Asthenia [Unknown]
  - Parkinson^s disease [Unknown]
  - Abdominal distension [Unknown]
  - Cerebellar stroke [Not Recovered/Not Resolved]
  - Respiratory arrest [Unknown]
  - Ischaemic stroke [Not Recovered/Not Resolved]

NARRATIVE: CASE EVENT DATE: 20191209
